FAERS Safety Report 9203236 (Version 1)
Quarter: 2013Q1

REPORT INFORMATION
  Report Type: Spontaneous
  Country: ES (occurrence: None)
  Receive Date: 20130328
  Receipt Date: 20130328
  Transmission Date: 20140127
  Serious: No
  Sender: FDA-Public Use
  Company Number: SYM-2013-01837

PATIENT
  Sex: Female

DRUGS (4)
  1. AZZALURE (BOTULINUM TOXIN TYPE A) (BOTULINUM TOXIN TYPE A) [Suspect]
     Indication: SKIN WRINKLING
     Route: 051
     Dates: start: 201102
  2. PERLANE [Suspect]
     Route: 051
     Dates: start: 201204
  3. RESTYLANE [Suspect]
     Indication: SKIN WRINKLING
     Dates: start: 201009
  4. BOTULINUM TOXIN [Suspect]
     Route: 051
     Dates: start: 2010

REACTIONS (7)
  - Face oedema [None]
  - Nausea [None]
  - Tremor [None]
  - Dyskinesia [None]
  - Hypotension [None]
  - Implant site inflammation [None]
  - Drug hypersensitivity [None]
